FAERS Safety Report 16211766 (Version 1)
Quarter: 2019Q2

REPORT INFORMATION
  Report Type: Spontaneous
  Country: US (occurrence: US)
  Receive Date: 20190417
  Receipt Date: 20190417
  Transmission Date: 20190711
  Serious: Yes (Other)
  Sender: FDA-Public Use
  Company Number: None

PATIENT
  Age: 44 Year
  Sex: Male
  Weight: 78.75 kg

DRUGS (1)
  1. METFORMIN ER [Suspect]
     Active Substance: METFORMIN HYDROCHLORIDE
     Indication: DIABETES MELLITUS
     Dosage: ?          QUANTITY:180 TABLET(S);?
     Route: 048
     Dates: start: 20190401

REACTIONS (3)
  - Therapeutic product effect incomplete [None]
  - Blood glucose increased [None]
  - Product substitution issue [None]

NARRATIVE: CASE EVENT DATE: 20190416
